FAERS Safety Report 7529843-2 (Version None)
Quarter: 2011Q2

REPORT INFORMATION
  Report Type: 
  Country: None (occurrence: None)
  Receive Date: 20110607
  Receipt Date: 20110524
  Transmission Date: 20111010
  Serious: Yes (Hospitalization)
  Sender: FDA-Public Use
  Company Number: US-CELGENEUS-163-21880-11053214

PATIENT
  Sex: Male

DRUGS (9)
  1. LEVOTHYROXINE SODIUM [Concomitant]
     Route: 065
  2. REVLIMID [Suspect]
     Dosage: 5 MILLIGRAM
     Route: 048
     Dates: start: 20090127
  3. DEXAMETHASONE [Concomitant]
     Route: 065
  4. MIRALAX [Concomitant]
     Route: 065
  5. XANAX [Concomitant]
     Route: 065
  6. PROTONIX [Concomitant]
     Route: 065
  7. TESTOSTERONE ENANTHATE [Concomitant]
     Route: 065
  8. AVELOX [Concomitant]
     Route: 065
  9. FENTANYL [Concomitant]
     Route: 065

REACTIONS (4)
  - CYST [None]
  - HAEMOPTYSIS [None]
  - RED BLOOD CELL COUNT DECREASED [None]
  - PNEUMONIA [None]
